FAERS Safety Report 11397953 (Version 4)
Quarter: 2016Q2

REPORT INFORMATION
  Report Type: Spontaneous
  Country: GB (occurrence: GB)
  Receive Date: 20150819
  Receipt Date: 20160425
  Transmission Date: 20160815
  Serious: Yes (Hospitalization)
  Sender: FDA-Public Use
  Company Number: GB-ABBVIE-15K-167-1445013-00

PATIENT
  Age: 63 Year
  Sex: Male

DRUGS (2)
  1. RITUXIMAB [Concomitant]
     Active Substance: RITUXIMAB
     Indication: PRODUCT USED FOR UNKNOWN INDICATION
     Dates: end: 201505
  2. HUMIRA [Suspect]
     Active Substance: ADALIMUMAB
     Indication: PRODUCT USED FOR UNKNOWN INDICATION
     Route: 065

REACTIONS (3)
  - Parkinsonism [Not Recovered/Not Resolved]
  - Dementia with Lewy bodies [Recovering/Resolving]
  - CSF protein increased [Unknown]

NARRATIVE: CASE EVENT DATE: 20150325
